FAERS Safety Report 17318577 (Version 1)
Quarter: 2020Q1

REPORT INFORMATION
  Report Type: Other
  Country: US (occurrence: GB)
  Receive Date: 20200124
  Receipt Date: 20200124
  Transmission Date: 20200409
  Serious: Yes (Other)
  Sender: FDA-Public Use
  Company Number: GB-BRECKENRIDGE PHARMACEUTICAL, INC.-2079401

PATIENT
  Age: 73 Year
  Sex: Female

DRUGS (10)
  1. DENOSUMAB [Suspect]
     Active Substance: DENOSUMAB
  2. ANASTROZOLE. [Concomitant]
     Active Substance: ANASTROZOLE
     Dates: start: 2008, end: 2011
  3. LETROZOLE. [Concomitant]
     Active Substance: LETROZOLE
     Dates: start: 2013, end: 2016
  4. ZOLEDRONIC ACID [Suspect]
     Active Substance: ZOLEDRONIC ACID
     Indication: METASTASES TO BONE
     Route: 042
  5. EXEMESTANE. [Concomitant]
     Active Substance: EXEMESTANE
     Dates: start: 2011, end: 2013
  6. MORPHINE SULFATE ORAL SOLUTION CII [Concomitant]
  7. TAMOXIFEN CITRATE. [Concomitant]
     Active Substance: TAMOXIFEN CITRATE
     Dates: start: 2013, end: 2016
  8. PARACETAMOL [Concomitant]
     Active Substance: ACETAMINOPHEN
  9. MEGESTROL ACETATE. [Concomitant]
     Active Substance: MEGESTROL ACETATE
  10. MODIFIED RELEASE MORPHINE 10 MG TWO TIMES PER DAY [Concomitant]

REACTIONS (3)
  - Oral cavity fistula [None]
  - Sinus operation [None]
  - Bone sequestrum [None]
